FAERS Safety Report 4687530-2 (Version None)
Quarter: 2005Q2

REPORT INFORMATION
  Report Type: 
  Country: None (occurrence: None)
  Receive Date: 20050610
  Receipt Date: 20050606
  Transmission Date: 20051028
  Serious: Yes (Other)
  Sender: FDA-Public Use
  Company Number: PHEH2005US06352

PATIENT
  Age: 47 Year
  Sex: Female
  Weight: 43 kg

DRUGS (2)
  1. LAMISIL [Suspect]
     Indication: NAIL TINEA
     Dosage: 250 MG, QD
     Route: 048
     Dates: start: 20050401, end: 20050501
  2. LAMISIL [Suspect]
     Dosage: 125 MG, QD
     Route: 048
     Dates: start: 20050501, end: 20050501

REACTIONS (2)
  - DYSPNOEA [None]
  - TACHYCARDIA [None]
